FAERS Safety Report 13739704 (Version 1)
Quarter: 2017Q3

REPORT INFORMATION
  Report Type: Spontaneous
  Country: BR (occurrence: BR)
  Receive Date: 20170710
  Receipt Date: 20170710
  Transmission Date: 20171127
  Serious: Yes (Other)
  Sender: FDA-Public Use
  Company Number: PHHY2016BR146158

PATIENT
  Sex: Female
  Weight: 59.5 kg

DRUGS (3)
  1. VICOG [Suspect]
     Active Substance: VINPOCETINE
     Indication: PRODUCT USED FOR UNKNOWN INDICATION
     Route: 065
  2. HYDERGINE [Suspect]
     Active Substance: ERGOLOID MESYLATES
     Indication: ISCHAEMIA
     Route: 065
  3. HYDERGINE [Suspect]
     Active Substance: ERGOLOID MESYLATES
     Indication: ISCHAEMIA
     Dosage: 1 DF, QD
     Route: 048

REACTIONS (3)
  - General physical health deterioration [Unknown]
  - Therapeutic response shortened [Unknown]
  - Ischaemia [Not Recovered/Not Resolved]
